FAERS Safety Report 12385045 (Version 2)
Quarter: 2016Q2

REPORT INFORMATION
  Report Type: Spontaneous
  Country: US (occurrence: US)
  Receive Date: 20160519
  Receipt Date: 20160621
  Transmission Date: 20160815
  Serious: No
  Sender: FDA-Public Use
  Company Number: US-VIIV HEALTHCARE LIMITED-US2016062357

PATIENT
  Sex: Male

DRUGS (2)
  1. SELZENTRY [Suspect]
     Active Substance: MARAVIROC
     Dosage: 150 MG, BID
  2. SELZENTRY [Suspect]
     Active Substance: MARAVIROC
     Indication: HIV INFECTION
     Dosage: 300 MG, QD
     Route: 048

REACTIONS (2)
  - Drug intolerance [Unknown]
  - Abdominal discomfort [Unknown]
